FAERS Safety Report 8507145-5 (Version None)
Quarter: 2012Q3

REPORT INFORMATION
  Report Type: 
  Country: None (occurrence: None)
  Receive Date: 20120703
  Receipt Date: 20120628
  Transmission Date: 20120928
  Serious: Yes (Hospitalization, Other)
  Sender: FDA-Public Use
  Company Number: 2012SP036740

PATIENT
  Sex: Male

DRUGS (2)
  1. PEG-INTRON [Suspect]
     Indication: HEPATITIS C
     Dates: start: 20060106, end: 20060623
  2. RIBAVIRIN [Suspect]
     Indication: HEPATITIS C
     Dates: start: 20060106, end: 20060623

REACTIONS (7)
  - PAIN IN EXTREMITY [None]
  - BUNION [None]
  - INSOMNIA [None]
  - DEPRESSION [None]
  - DRUG INEFFECTIVE [None]
  - VARICOSE VEIN [None]
  - BENIGN NEOPLASM OF ADRENAL GLAND [None]
